FAERS Safety Report 23564458 (Version 2)
Quarter: 2024Q1

REPORT INFORMATION
  Report Type: Report from Study
  Country: US (occurrence: US)
  Receive Date: 20240226
  Receipt Date: 20240229
  Transmission Date: 20240410
  Serious: Yes (Other)
  Sender: FDA-Public Use
  Company Number: US-ABBVIE-5650648

PATIENT
  Age: 56 Year
  Sex: Female

DRUGS (3)
  1. RINVOQ [Suspect]
     Active Substance: UPADACITINIB
     Indication: Rheumatoid arthritis
     Route: 048
     Dates: start: 20221007
  2. RINVOQ [Suspect]
     Active Substance: UPADACITINIB
     Indication: Rheumatoid arthritis
     Dosage: STOPPED IN OCT 2022
     Route: 048
     Dates: start: 20221001
  3. VALTREX [Concomitant]
     Active Substance: VALACYCLOVIR HYDROCHLORIDE
     Indication: Product used for unknown indication

REACTIONS (6)
  - Retinal detachment [Not Recovered/Not Resolved]
  - Herpes zoster [Recovering/Resolving]
  - Headache [Not Recovered/Not Resolved]
  - Herpes zoster [Recovered/Resolved]
  - Nerve injury [Unknown]
  - Pain [Unknown]

NARRATIVE: CASE EVENT DATE: 20230701
